FAERS Safety Report 8915781 (Version 1)
Quarter: 2012Q4

REPORT INFORMATION
  Report Type: 
  Country: US (occurrence: US)
  Receive Date: 20121119
  Receipt Date: 20121119
  Transmission Date: 20130627
  Serious: No
  Sender: FDA-Public Use
  Company Number: US-009507513-1210USA005206

PATIENT
  Age: 27 Year
  Sex: Male

DRUGS (1)
  1. CLARITIN [Suspect]
     Indication: SEASONAL ALLERGY
     Dosage: 20 mg, Once
     Route: 048
     Dates: start: 20121005

REACTIONS (3)
  - Dizziness [Unknown]
  - Overdose [Unknown]
  - Incorrect drug administration rate [Unknown]
